FAERS Safety Report 8512623-9 (Version None)
Quarter: 2012Q3

REPORT INFORMATION
  Report Type: 
  Country: None (occurrence: None)
  Receive Date: 20120716
  Receipt Date: 20120705
  Transmission Date: 20120928
  Serious: Yes (Other)
  Sender: FDA-Public Use
  Company Number: US-VERTEX PHARMACEUTICALS INC.-AE-2012-009987

PATIENT
  Sex: Male
  Weight: 66.284 kg

DRUGS (3)
  1. INCIVEK [Suspect]
     Indication: HEPATITIS C
     Route: 048
     Dates: start: 20120430, end: 20120629
  2. PEGASYS [Concomitant]
     Indication: HEPATITIS C
     Route: 058
     Dates: start: 20120430, end: 20120629
  3. RIBAVIRIN [Concomitant]
     Indication: HEPATITIS C
     Dates: start: 20120430, end: 20120629

REACTIONS (3)
  - DEPRESSION [None]
  - MULTIPLE DRUG OVERDOSE INTENTIONAL [None]
  - SEIZURE LIKE PHENOMENA [None]
